FAERS Safety Report 6978700-9 (Version None)
Quarter: 2010Q3

REPORT INFORMATION
  Report Type: 
  Country: None (occurrence: None)
  Receive Date: 20100913
  Receipt Date: 20100908
  Transmission Date: 20110219
  Serious: Yes (Other)
  Sender: FDA-Public Use
  Company Number: A0880686A

PATIENT
  Age: 71 Year
  Sex: Male

DRUGS (6)
  1. COREG [Suspect]
     Indication: PRODUCT USED FOR UNKNOWN INDICATION
     Route: 048
  2. PLAVIX [Suspect]
     Dosage: 75MGD PER DAY
     Route: 048
     Dates: start: 20090401
  3. LISINOPRIL [Suspect]
     Indication: PRODUCT USED FOR UNKNOWN INDICATION
     Route: 065
  4. ASPIRIN [Suspect]
     Dosage: 81MG TWICE PER DAY
     Route: 048
  5. SIMVASTATIN [Concomitant]
  6. RAMIPRIL [Concomitant]

REACTIONS (9)
  - CONFUSIONAL STATE [None]
  - CONTUSION [None]
  - DIZZINESS [None]
  - GINGIVAL BLEEDING [None]
  - HAEMORRHAGIC DIATHESIS [None]
  - HEADACHE [None]
  - MEMORY IMPAIRMENT [None]
  - MULTIPLE ALLERGIES [None]
  - SKIN ATROPHY [None]
